FAERS Safety Report 18398778 (Version 2)
Quarter: 2020Q4

REPORT INFORMATION
  Report Type: Spontaneous
  Country: US (occurrence: US)
  Receive Date: 20201019
  Receipt Date: 20201119
  Transmission Date: 20210114
  Serious: No
  Sender: FDA-Public Use
  Company Number: US-BAUSCH-BL-2020-028381

PATIENT
  Age: 45 Year
  Sex: Male

DRUGS (2)
  1. LATANOPROST OPHTHALMIC SOLUTION 0.005% [Suspect]
     Active Substance: LATANOPROST
     Indication: GLAUCOMA
     Dosage: THERAPY START DAY: ABOUT 6 MONTHS AGO
     Route: 047
     Dates: start: 2020, end: 20200925
  2. LATANOPROST OPHTHALMIC SOLUTION 0.005% [Suspect]
     Active Substance: LATANOPROST
     Route: 047
     Dates: start: 20200928

REACTIONS (5)
  - Product packaging quantity issue [Unknown]
  - Visual impairment [Unknown]
  - Eye pain [Unknown]
  - Headache [Unknown]
  - Therapy interrupted [Unknown]

NARRATIVE: CASE EVENT DATE: 202009
